FAERS Safety Report 5163322-5 (Version None)
Quarter: 2006Q4

REPORT INFORMATION
  Report Type: 
  Country: None (occurrence: None)
  Receive Date: 20061121
  Receipt Date: 20061107
  Transmission Date: 20070319
  Serious: Yes (Death)
  Sender: FDA-Public Use
  Company Number: 2006BH014490

PATIENT
  Age: 68 Year
  Sex: Female

DRUGS (3)
  1. DIANEAL [Suspect]
     Indication: PERITONEAL DIALYSIS
     Dosage: UNK;IP
     Route: 033
     Dates: start: 20060602
  2. DIANEAL [Suspect]
     Indication: PERITONEAL DIALYSIS
     Dosage: UNK;IP
     Route: 033
     Dates: start: 20060602
  3. EXTRANEAL [Suspect]
     Indication: PERITONEAL DIALYSIS
     Dosage: UNK;IP
     Route: 033
     Dates: start: 20060602

REACTIONS (2)
  - CHRONIC OBSTRUCTIVE PULMONARY DISEASE [None]
  - DISEASE PROGRESSION [None]
